FAERS Safety Report 5286013-9 (Version None)
Quarter: 2007Q2

REPORT INFORMATION
  Report Type: 
  Country: None (occurrence: None)
  Receive Date: 20070404
  Receipt Date: 20070327
  Transmission Date: 20071010
  Serious: Yes (Hospitalization)
  Sender: FDA-Public Use
  Company Number: PHHO2006CA17540

PATIENT
  Age: 54 Year
  Sex: Male

DRUGS (1)
  1. NEORAL [Suspect]
     Indication: LIVER TRANSPLANT
     Dosage: 550 MG / DAY
     Route: 048
     Dates: start: 20060908

REACTIONS (8)
  - ABNORMAL BEHAVIOUR [None]
  - AGGRESSION [None]
  - ANOREXIA [None]
  - APATHY [None]
  - DELIRIUM [None]
  - HEPATIC ENCEPHALOPATHY [None]
  - MUTISM [None]
  - NEUROTOXICITY [None]
